FAERS Safety Report 7263309-2 (Version None)
Quarter: 2011Q1

REPORT INFORMATION
  Report Type: 
  Country: None (occurrence: None)
  Receive Date: 20110130
  Receipt Date: 20100923
  Transmission Date: 20110831
  Serious: No
  Sender: FDA-Public Use
  Company Number: US-ABBOTT-10P-163-0673160-00

PATIENT
  Age: 50 Year
  Sex: Female

DRUGS (8)
  1. HUMIRA [Suspect]
     Route: 058
  2. HUMIRA [Suspect]
     Indication: CROHN'S DISEASE
     Route: 058
     Dates: start: 20100915
  3. ZOLOFT [Concomitant]
     Indication: DEPRESSION
  4. ZOLOFT [Concomitant]
     Indication: OBSESSIVE-COMPULSIVE DISORDER
  5. ESTRACE [Concomitant]
     Indication: MENOPAUSE
  6. HUMIRA [Suspect]
     Route: 058
  7. AZULFADINE [Concomitant]
     Indication: CROHN'S DISEASE
  8. ALLEGRA D 24 HOUR [Concomitant]
     Indication: SEASONAL ALLERGY

REACTIONS (2)
  - SLUGGISHNESS [None]
  - NAUSEA [None]
